FAERS Safety Report 10798382 (Version 2)
Quarter: 2015Q1

REPORT INFORMATION
  Report Type: Spontaneous
  Country: DE (occurrence: DE)
  Receive Date: 20150216
  Receipt Date: 20150319
  Transmission Date: 20150721
  Serious: Yes (Hospitalization)
  Sender: FDA-Public Use
  Company Number: DE-ABBVIE-15P-062-1346517-00

PATIENT
  Age: 69 Year
  Sex: Male
  Weight: 100 kg

DRUGS (60)
  1. MADOPAR [Concomitant]
     Active Substance: BENSERAZIDE HYDROCHLORIDE\LEVODOPA
     Dosage: UP TO THREE SACHETS
  2. VITAMIN B12 [Concomitant]
     Active Substance: CYANOCOBALAMIN
     Dosage: 0-0-0-1.25-0-0
  3. HYDROCHLOROTHIAZID [Concomitant]
     Active Substance: HYDROCHLOROTHIAZIDE
     Indication: PRODUCT USED FOR UNKNOWN INDICATION
     Dosage: AFTER BREAKFAST
  4. PANTOPRAZOLE [Concomitant]
     Active Substance: PANTOPRAZOLE SODIUM
     Dosage: TWO HOURS BEFORE BREAKFAST
  5. PANTOPRAZOLE [Concomitant]
     Active Substance: PANTOPRAZOLE SODIUM
     Dosage: 0-0-0-1.25-0-0
  6. CARBIDOPA/LEVODOPA [Concomitant]
     Active Substance: CARBIDOPA\LEVODOPA
     Indication: PRODUCT USED FOR UNKNOWN INDICATION
     Dosage: 100/25, BY NIGHT
  7. PIRACETAM [Concomitant]
     Active Substance: PIRACETAM
     Indication: PRODUCT USED FOR UNKNOWN INDICATION
     Dosage: 0-1-0-0-0-0
  8. CLOZAPINE. [Concomitant]
     Active Substance: CLOZAPINE
     Dosage: TWO HOURS BEFORE BREAKFAST
  9. HYDROCHLOROTHIAZID [Concomitant]
     Active Substance: HYDROCHLOROTHIAZIDE
     Dosage: TWO HOURS BEFORE BREAKFAST
  10. HYDROCHLOROTHIAZID [Concomitant]
     Active Substance: HYDROCHLOROTHIAZIDE
     Dosage: 100/25,  BY NIGHT
  11. HYDROCHLOROTHIAZID [Concomitant]
     Active Substance: HYDROCHLOROTHIAZIDE
     Dosage: 0-0-0-1.25-0-0
  12. TAVOR [Concomitant]
     Active Substance: LORAZEPAM
     Indication: PRODUCT USED FOR UNKNOWN INDICATION
  13. TAVOR [Concomitant]
     Active Substance: LORAZEPAM
     Dosage: 0-0-0-1.25-0-0
  14. PANTOPRAZOLE [Concomitant]
     Active Substance: PANTOPRAZOLE SODIUM
     Dosage: 100/25,  BY NIGHT
  15. TASMAR [Concomitant]
     Active Substance: TOLCAPONE
     Indication: PRODUCT USED FOR UNKNOWN INDICATION
     Dosage: 1-1-1
  16. MACROGOL [Concomitant]
     Active Substance: POLYETHYLENE GLYCOLS
     Indication: PRODUCT USED FOR UNKNOWN INDICATION
     Dosage: UP TO THREE SACHETS
  17. CARBIDOPA/LEVODOPA [Concomitant]
     Active Substance: CARBIDOPA\LEVODOPA
     Dosage: 100/25,  BY NIGHT
  18. VITAMIN B12 [Concomitant]
     Active Substance: CYANOCOBALAMIN
     Dosage: 0-0-0-1.25-0-0
  19. HYDROCHLOROTHIAZID [Concomitant]
     Active Substance: HYDROCHLOROTHIAZIDE
     Dosage: UP TO THREE SACHETS
  20. DOMPERIDON [Concomitant]
     Active Substance: DOMPERIDONE
     Dosage: UP TO THREE SACHETS
  21. DOMPERIDON [Concomitant]
     Active Substance: DOMPERIDONE
     Dosage: 0-0-0-1.25-0-0
  22. NACOM [Concomitant]
     Active Substance: CARBIDOPA\LEVODOPA
     Dosage: TWO HOURS BEFORE BREAKFAST
  23. NACOM [Concomitant]
     Active Substance: CARBIDOPA\LEVODOPA
     Dosage: 0-0-0-1.25-0-0
  24. MADOPAR [Concomitant]
     Active Substance: BENSERAZIDE HYDROCHLORIDE\LEVODOPA
     Dosage: TWO HOURS BEFORE BREAKFAST
  25. DOMPERIDON [Concomitant]
     Active Substance: DOMPERIDONE
     Dosage: TWO HOURS BEFORE BREAKFAST
  26. DOMPERIDON [Concomitant]
     Active Substance: DOMPERIDONE
     Dosage: 100/25,  BY NIGHT
  27. TAVOR [Concomitant]
     Active Substance: LORAZEPAM
     Dosage: 100/25,  BY NIGHT
  28. TAVOR [Concomitant]
     Active Substance: LORAZEPAM
     Dosage: UP TO THREE SACHETS
  29. TAVOR [Concomitant]
     Active Substance: LORAZEPAM
     Dosage: 0-0-0-1.25-0-0
  30. PANTOPRAZOLE [Concomitant]
     Active Substance: PANTOPRAZOLE SODIUM
     Dosage: 0-0-0-1.25-0-0
  31. MADOPAR [Concomitant]
     Active Substance: BENSERAZIDE HYDROCHLORIDE\LEVODOPA
     Dosage: 0-0-0-1.25-0-0
  32. VITAMIN B12 [Concomitant]
     Active Substance: CYANOCOBALAMIN
     Dosage: UP TO THREE SACHETS
  33. DOMPERIDON [Concomitant]
     Active Substance: DOMPERIDONE
     Indication: PRODUCT USED FOR UNKNOWN INDICATION
     Dosage: 1-1-1
  34. NACOM [Concomitant]
     Active Substance: CARBIDOPA\LEVODOPA
     Indication: PRODUCT USED FOR UNKNOWN INDICATION
     Dosage: BY NIGHT
  35. PANTOPRAZOLE [Concomitant]
     Active Substance: PANTOPRAZOLE SODIUM
     Indication: PRODUCT USED FOR UNKNOWN INDICATION
     Dosage: 1-1-1
  36. ACETYLSALICYLIC ACID [Concomitant]
     Active Substance: ASPIRIN
     Indication: PRODUCT USED FOR UNKNOWN INDICATION
     Dosage: AFTER BREAKFAST
  37. SIMVASTATIN. [Concomitant]
     Active Substance: SIMVASTATIN
     Indication: PRODUCT USED FOR UNKNOWN INDICATION
     Dosage: BY NIGHT
  38. ISICOM [Concomitant]
     Active Substance: CARBIDOPA\LEVODOPA
     Indication: PRODUCT USED FOR UNKNOWN INDICATION
     Dosage: 100MG/25MG, 1.75-1.25-1.5-0-1.25-1.25
  39. CARBIDOPA/LEVODOPA [Concomitant]
     Active Substance: CARBIDOPA\LEVODOPA
     Dosage: TWO HOURS BEFORE BREAKFAST
  40. PIRACETAM [Concomitant]
     Active Substance: PIRACETAM
     Dosage: TWO HOURS BEFORE BREAKFAST
  41. PIRACETAM [Concomitant]
     Active Substance: PIRACETAM
     Dosage: 100/25,  BY NIGHT
  42. CLOZAPINE. [Concomitant]
     Active Substance: CLOZAPINE
     Indication: PRODUCT USED FOR UNKNOWN INDICATION
     Dosage: 3/4 BY NIGHT
  43. VITAMIN B12 [Concomitant]
     Active Substance: CYANOCOBALAMIN
     Dosage: TWO HOURS BEFORE BREAKFAST
  44. HYDROCHLOROTHIAZID [Concomitant]
     Active Substance: HYDROCHLOROTHIAZIDE
     Dosage: 0-0-0-1.25-0-0
  45. TAVOR [Concomitant]
     Active Substance: LORAZEPAM
     Dosage: TWO HOURS BEFORE BREAKFAST
  46. PANTOPRAZOLE [Concomitant]
     Active Substance: PANTOPRAZOLE SODIUM
     Dosage: UP TO THREE SACHETS
  47. PANTOPRAZOLE [Concomitant]
     Active Substance: PANTOPRAZOLE SODIUM
     Dosage: TWO HOURS BEFORE BREAKFAST
  48. LEVODOPA/CARBIDOPA [Suspect]
     Active Substance: CARBIDOPA\LEVODOPA
     Indication: PARKINSON^S DISEASE
     Dosage: MD 7.5 ML?CRD 3.8 ML/H?ED 3.0 ML
     Route: 050
     Dates: start: 20130618
  49. ENALAPRIL [Concomitant]
     Active Substance: ENALAPRIL
     Indication: PRODUCT USED FOR UNKNOWN INDICATION
     Dosage: AFTER BREAKFAST
  50. MADOPAR [Concomitant]
     Active Substance: BENSERAZIDE HYDROCHLORIDE\LEVODOPA
     Indication: PRODUCT USED FOR UNKNOWN INDICATION
     Dosage: AFTER BREAKFAST
  51. VITAMIN B12 [Concomitant]
     Active Substance: CYANOCOBALAMIN
     Dosage: 100/25,  BY NIGHT
  52. NACOM [Concomitant]
     Active Substance: CARBIDOPA\LEVODOPA
     Dosage: 100/25,  BY NIGHT
  53. NACOM [Concomitant]
     Active Substance: CARBIDOPA\LEVODOPA
     Dosage: UP TO THREE SACHETS
  54. NACOM [Concomitant]
     Active Substance: CARBIDOPA\LEVODOPA
     Dosage: 0-0-0-1.25-0-0
  55. AZILECT [Concomitant]
     Active Substance: RASAGILINE MESYLATE
     Indication: PRODUCT USED FOR UNKNOWN INDICATION
     Dosage: AFTER BREAKFAST
  56. CLOZAPINE. [Concomitant]
     Active Substance: CLOZAPINE
     Dosage: 100/25,  BY NIGHT
  57. MADOPAR [Concomitant]
     Active Substance: BENSERAZIDE HYDROCHLORIDE\LEVODOPA
     Dosage: 100/25,  BY NIGHT
  58. MADOPAR [Concomitant]
     Active Substance: BENSERAZIDE HYDROCHLORIDE\LEVODOPA
     Dosage: 0-0-0-1.25-0-0
  59. VITAMIN B12 [Concomitant]
     Active Substance: CYANOCOBALAMIN
     Indication: PRODUCT USED FOR UNKNOWN INDICATION
  60. DOMPERIDON [Concomitant]
     Active Substance: DOMPERIDONE
     Dosage: 0-0-0-1.25-0-0

REACTIONS (3)
  - Dyspnoea [Recovered/Resolved]
  - Asthenia [Recovered/Resolved]
  - Pneumonia [Recovered/Resolved]

NARRATIVE: CASE EVENT DATE: 20150208
